FAERS Safety Report 5381764-X (Version None)
Quarter: 2007Q3

REPORT INFORMATION
  Report Type: 
  Country: None (occurrence: None)
  Receive Date: 20070709
  Receipt Date: 20070625
  Transmission Date: 20080115
  Serious: Yes (Hospitalization)
  Sender: FDA-Public Use
  Company Number: US-ELI_LILLY_AND_COMPANY-US200706002174

PATIENT
  Age: 85 Year
  Sex: Female
  Weight: 67.346 kg

DRUGS (14)
  1. FORTEO [Suspect]
     Indication: OSTEOPOROSIS
     Dosage: 20 UG, UNK
     Dates: start: 20060908, end: 20061108
  2. FORTEO [Suspect]
     Dosage: UNK, UNK
     Dates: start: 20070108
  3. PAXIL [Concomitant]
  4. LIBRIUM [Concomitant]
  5. CARDIZEM [Concomitant]
  6. ASPIRIN [Concomitant]
  7. ATACAND [Concomitant]
  8. SYNTHROID [Concomitant]
  9. CLARITIN [Concomitant]
  10. TYLENOL /USA/ [Concomitant]
  11. MULTI-VITAMIN [Concomitant]
  12. FLAXSEED OIL [Concomitant]
  13. METAMUCIL [Concomitant]
  14. CALCIUM CARBONATE [Concomitant]

REACTIONS (2)
  - CHOLELITHIASIS [None]
  - EYE PAIN [None]
